FAERS Safety Report 8005877-9 (Version None)
Quarter: 2011Q4

REPORT INFORMATION
  Report Type: 
  Country: None (occurrence: None)
  Receive Date: 20111223
  Receipt Date: 20111220
  Transmission Date: 20120403
  Serious: Yes (Disabling, Other)
  Sender: FDA-Public Use
  Company Number: US-AMGEN-USASP2011045015

PATIENT
  Age: 87 Year
  Sex: Male

DRUGS (3)
  1. METHOTREXATE [Concomitant]
     Dosage: UNK
  2. ENBREL [Suspect]
     Indication: RHEUMATOID ARTHRITIS
     Dosage: 25 MG, QWK
     Route: 058
     Dates: end: 20111101
  3. ENBREL [Suspect]
     Dosage: 50 MG, QWK
     Dates: start: 20040416

REACTIONS (13)
  - OEDEMA PERIPHERAL [None]
  - WALKING AID USER [None]
  - DISABILITY [None]
  - ASTHENIA [None]
  - EXERCISE TOLERANCE DECREASED [None]
  - PULMONARY MASS [None]
  - DYSPNOEA [None]
  - PAIN IN EXTREMITY [None]
  - CARDIAC FAILURE CONGESTIVE [None]
  - ARTHRALGIA [None]
  - ERYTHEMA [None]
  - LEFT VENTRICULAR HYPERTROPHY [None]
  - EJECTION FRACTION DECREASED [None]
